FAERS Safety Report 6610290-2 (Version None)
Quarter: 2010Q1

REPORT INFORMATION
  Report Type: 
  Country: None (occurrence: None)
  Receive Date: 20100302
  Receipt Date: 20100223
  Transmission Date: 20100710
  Serious: Yes (Death, Hospitalization, Other)
  Sender: FDA-Public Use
  Company Number: CA-CELGENEUS-028-C4047-10011497

PATIENT
  Sex: Female
  Weight: 53.5 kg

DRUGS (21)
  1. CC-4047 [Suspect]
     Indication: MULTIPLE MYELOMA
     Route: 048
     Dates: start: 20100105, end: 20100118
  2. REVLIMID [Suspect]
     Indication: MULTIPLE MYELOMA
     Route: 048
     Dates: start: 20081101
  3. THALIDOMIDE [Suspect]
     Indication: MULTIPLE MYELOMA
     Route: 048
     Dates: start: 20100210, end: 20100213
  4. CYCLOPHOSPHAMIDE [Suspect]
     Indication: MULTIPLE MYELOMA
     Route: 048
     Dates: start: 20100210, end: 20100213
  5. DEXAMETHASONE [Suspect]
     Indication: MULTIPLE MYELOMA
     Route: 048
     Dates: start: 20100210, end: 20100213
  6. NORMAL SALINE [Concomitant]
     Indication: PROPHYLAXIS AGAINST DEHYDRATION
     Route: 051
     Dates: start: 20100105, end: 20100107
  7. NORMAL SALINE [Concomitant]
  8. ASPIRIN [Concomitant]
     Indication: THROMBOSIS PROPHYLAXIS
     Route: 048
     Dates: start: 20070101
  9. PREVACID [Concomitant]
     Route: 065
     Dates: start: 20080101
  10. ACYCLOVIR [Concomitant]
     Route: 048
     Dates: start: 20070101
  11. PAMIDRONATE DISODIUM [Concomitant]
     Route: 051
     Dates: start: 20100105, end: 20100105
  12. VITAMIN C [Concomitant]
     Indication: SUPPLEMENTATION THERAPY
     Route: 048
     Dates: start: 20100101
  13. ZINC [Concomitant]
     Indication: SUPPLEMENTATION THERAPY
     Route: 048
     Dates: start: 20100101
  14. VITAMIN D [Concomitant]
     Indication: SUPPLEMENTATION THERAPY
     Route: 048
     Dates: start: 20091201
  15. CALCIUM [Concomitant]
     Indication: SUPPLEMENTATION THERAPY
     Route: 048
     Dates: start: 20091201
  16. METOCLOPRAMIDE HYDROCHLORIDE [Concomitant]
     Route: 048
     Dates: start: 20090101
  17. HYDROMORPHONE HCL [Concomitant]
     Indication: BACK PAIN
     Route: 048
     Dates: start: 20100105
  18. PERCOCET [Concomitant]
     Indication: BACK PAIN
     Route: 048
     Dates: start: 20100105
  19. PEG [Concomitant]
     Indication: CONSTIPATION PROPHYLAXIS
     Dosage: 250 CC
     Route: 048
     Dates: start: 20100105
  20. POTASSIUM CHLORIDE [Concomitant]
     Route: 051
     Dates: start: 20100105, end: 20100105
  21. K-DUR [Concomitant]
     Route: 048
     Dates: start: 20100105, end: 20100105

REACTIONS (3)
  - DISEASE PROGRESSION [None]
  - MUSCULOSKELETAL CHEST PAIN [None]
  - RENAL FAILURE ACUTE [None]
